FAERS Safety Report 10538869 (Version 2)
Quarter: 2014Q4

REPORT INFORMATION
  Report Type: Spontaneous
  Country: GB (occurrence: GB)
  Receive Date: 20141023
  Receipt Date: 20141027
  Transmission Date: 20150529
  Serious: Yes (Other)
  Sender: FDA-Public Use
  Company Number: GB-TEVA-515430ISR

PATIENT
  Sex: Female

DRUGS (2)
  1. DIAZEPAM. [Suspect]
     Active Substance: DIAZEPAM
     Indication: PANIC ATTACK
     Route: 065
     Dates: start: 2006
  2. ZIMOVANE [Suspect]
     Active Substance: ZOPICLONE
     Indication: SLEEP DISORDER
     Dosage: 7.5 MILLIGRAM DAILY;
     Route: 065
     Dates: start: 2006, end: 2011

REACTIONS (5)
  - Gastric disorder [Unknown]
  - Seizure [Unknown]
  - Diarrhoea [Unknown]
  - Loss of consciousness [Unknown]
  - Anaemia [Recovered/Resolved]

NARRATIVE: CASE EVENT DATE: 2007
